FAERS Safety Report 11104472 (Version 3)
Quarter: 2015Q4

REPORT INFORMATION
  Report Type: Spontaneous
  Country: US (occurrence: US)
  Receive Date: 20150511
  Receipt Date: 20151230
  Transmission Date: 20160304
  Serious: Yes (Hospitalization, Other)
  Sender: FDA-Public Use
  Company Number: US-BAYER-2015-215249

PATIENT
  Age: 18 Year
  Sex: Female
  Weight: 52.15 kg

DRUGS (5)
  1. ZOFRAN [Concomitant]
     Active Substance: ONDANSETRON HYDROCHLORIDE
     Dosage: 8 MG, UNK
     Route: 042
     Dates: start: 20120821
  2. CITALOPRAM [Concomitant]
     Active Substance: CITALOPRAM HYDROBROMIDE
     Indication: DEPRESSION
     Dosage: 40 MG, QD
     Route: 048
     Dates: end: 20121007
  3. IBUPROFEN. [Concomitant]
     Active Substance: IBUPROFEN
     Indication: PAIN
     Dosage: 800 MG, TID, AS NEEDED
     Route: 048
     Dates: end: 20121008
  4. TORADOL [Concomitant]
     Active Substance: KETOROLAC TROMETHAMINE
     Dosage: 30 MG, UNK
     Route: 042
     Dates: start: 20120821
  5. MIRENA [Suspect]
     Active Substance: LEVONORGESTREL
     Indication: CONTRACEPTION
     Dosage: 20 MCG/24HR, CONT
     Route: 015
     Dates: start: 20100324, end: 20121009

REACTIONS (9)
  - Suicide attempt [None]
  - Injury [None]
  - Abdominal pain [None]
  - General physical health deterioration [None]
  - Device issue [None]
  - Device dislocation [None]
  - Infection [None]
  - Device difficult to use [None]
  - Pain [None]

NARRATIVE: CASE EVENT DATE: 20100430
